FAERS Safety Report 4721426-2 (Version None)
Quarter: 2005Q3

REPORT INFORMATION
  Report Type: 
  Country: None (occurrence: None)
  Receive Date: 20050721
  Receipt Date: 20040826
  Transmission Date: 20060218
  Serious: No
  Sender: FDA-Public Use
  Company Number: US-BRISTOL-MYERS SQUIBB COMPANY-12685640

PATIENT
  Age: 79 Year
  Sex: Male

DRUGS (4)
  1. WARFARIN SODIUM [Suspect]
     Indication: ANTICOAGULANT THERAPY
     Dosage: DOSAGE: 2.5MG AND 5MG ALTERNATING DAILY
     Route: 048
  2. ALLOPURINOL [Concomitant]
     Indication: BLOOD URIC ACID
  3. VITAMINS [Concomitant]
  4. CALCIUM GLUCONATE [Concomitant]

REACTIONS (2)
  - BLEEDING TIME PROLONGED [None]
  - INTERNATIONAL NORMALISED RATIO ABNORMAL [None]
